FAERS Safety Report 26172735 (Version 1)
Quarter: 2025Q4

REPORT INFORMATION
  Report Type: Spontaneous
  Country: JP (occurrence: JP)
  Receive Date: 20251218
  Receipt Date: 20251218
  Transmission Date: 20260117
  Serious: Yes (Other)
  Sender: ASTELLAS
  Company Number: JP-ASTELLAS-2025-AER-069309

PATIENT
  Age: 90 Year
  Sex: Male

DRUGS (3)
  1. ENZALUTAMIDE [Suspect]
     Active Substance: ENZALUTAMIDE
     Indication: Hormone-refractory prostate cancer
     Route: 065
  2. BICALUTAMIDE [Concomitant]
     Active Substance: BICALUTAMIDE
     Indication: Product used for unknown indication
     Route: 065
  3. BICALUTAMIDE [Concomitant]
     Active Substance: BICALUTAMIDE
     Route: 065

REACTIONS (3)
  - Platelet count decreased [Unknown]
  - Pyrexia [Unknown]
  - Prostatic specific antigen increased [Unknown]
